FAERS Safety Report 8554728-2 (Version None)
Quarter: 2012Q3

REPORT INFORMATION
  Report Type: 
  Country: None (occurrence: None)
  Receive Date: 20120731
  Receipt Date: 20120717
  Transmission Date: 20120928
  Serious: Yes (Hospitalization)
  Sender: FDA-Public Use
  Company Number: CHPA2012US008911

PATIENT
  Age: 85 Year
  Sex: Female

DRUGS (1)
  1. NUPERCAINAL HEMORRHOIDAL/ANES OINTMENT [Suspect]
     Indication: HAEMORRHOIDS
     Dosage: UNK, 1 TO 2 TIMES DAILY, PRN
     Route: 061
     Dates: start: 19720101

REACTIONS (4)
  - ASTHENIA [None]
  - CONSTIPATION [None]
  - CEREBROVASCULAR ACCIDENT [None]
  - HAEMORRHOIDS [None]
